FAERS Safety Report 7681564-1 (Version None)
Quarter: 2011Q3

REPORT INFORMATION
  Report Type: 
  Country: None (occurrence: None)
  Receive Date: 20110812
  Receipt Date: 20110810
  Transmission Date: 20111222
  Serious: Yes (Hospitalization)
  Sender: FDA-Public Use
  Company Number: PHHY2011ZA04932

PATIENT
  Age: 78 Year
  Sex: Female

DRUGS (5)
  1. CALTRATE PLUS [Concomitant]
     Dosage: UNK UKN, UNK
  2. WARFARIN SODIUM [Concomitant]
     Indication: PULMONARY EMBOLISM
     Dosage: UNK UKN, UNK
     Dates: start: 20090101
  3. DISPRIN [Concomitant]
     Indication: BLOOD DISORDER
     Dosage: UNK UKN, UNK
     Dates: start: 20090101
  4. ZOLEDRONOC ACID [Suspect]
     Indication: OSTEOPOROSIS
     Dosage: 5 MG/100 ML
     Route: 042
     Dates: start: 20100115
  5. LEVOTHYROXINE SODIUM [Concomitant]
     Indication: HYPOTHYROIDISM
     Dosage: UNK UKN, UNK
     Dates: start: 20080101

REACTIONS (2)
  - FIBULA FRACTURE [None]
  - TIBIA FRACTURE [None]
